FAERS Safety Report 5905068-9 (Version None)
Quarter: 2008Q3

REPORT INFORMATION
  Report Type: 
  Country: None (occurrence: None)
  Receive Date: 20080909
  Receipt Date: 20080519
  Transmission Date: 20090109
  Serious: Yes (Hospitalization)
  Sender: FDA-Public Use
  Company Number: 163-20785-08051096

PATIENT
  Age: 63 Year
  Sex: Male
  Weight: 72.5755 kg

DRUGS (12)
  1. THALOMID [Suspect]
     Indication: COUGH
     Dosage: 100 MG, 1 IN 1 D, ORAL ; 50 MG, 1 IN 1 D
     Route: 048
     Dates: start: 20080416, end: 20080429
  2. THALOMID [Suspect]
     Indication: IDIOPATHIC PULMONARY FIBROSIS
     Dosage: 100 MG, 1 IN 1 D, ORAL ; 50 MG, 1 IN 1 D
     Route: 048
     Dates: start: 20080416, end: 20080429
  3. THALOMID [Suspect]
     Indication: COUGH
     Dosage: 100 MG, 1 IN 1 D, ORAL ; 50 MG, 1 IN 1 D
     Route: 048
     Dates: start: 20080430, end: 20080513
  4. THALOMID [Suspect]
     Indication: IDIOPATHIC PULMONARY FIBROSIS
     Dosage: 100 MG, 1 IN 1 D, ORAL ; 50 MG, 1 IN 1 D
     Route: 048
     Dates: start: 20080430, end: 20080513
  5. TRAZODONE HCL [Concomitant]
  6. NEXIUM [Concomitant]
  7. SIMVASTATIN [Concomitant]
  8. NAPROSYN [Concomitant]
  9. AMLODIPINE [Concomitant]
  10. BENZONATATE [Concomitant]
  11. PROPIONATE (FLUTICASONE PROPIONATE) [Concomitant]
  12. TYLENOL SINUS (TYLENOL SINUS MEDICATION) [Concomitant]

REACTIONS (2)
  - DYSPNOEA [None]
  - IDIOPATHIC PULMONARY FIBROSIS [None]
